FAERS Safety Report 8609812 (Version 3)
Quarter: 2013Q2

REPORT INFORMATION
  Report Type: Spontaneous
  Country: CA (occurrence: CA)
  Receive Date: 20120612
  Receipt Date: 20130603
  Transmission Date: 20140414
  Serious: Yes (Other)
  Sender: FDA-Public Use
  Company Number: CA-JNJFOC-20120601758

PATIENT
  Age: 36 Year
  Sex: Male
  Weight: 107 kg

DRUGS (7)
  1. REMICADE [Suspect]
     Indication: PSORIATIC ARTHROPATHY
     Route: 042
     Dates: start: 20120517
  2. REMICADE [Suspect]
     Indication: PSORIATIC ARTHROPATHY
     Route: 042
     Dates: start: 20120531, end: 20120531
  3. REMICADE [Suspect]
     Indication: PSORIATIC ARTHROPATHY
     Route: 042
     Dates: start: 20090901, end: 201106
  4. NAPROSYN [Concomitant]
     Route: 065
     Dates: start: 20120529
  5. TYLENOL [Concomitant]
     Indication: ARTHRALGIA
     Dosage: 2 TABLETS
     Route: 065
     Dates: start: 20120529
  6. BENADRYL [Concomitant]
     Indication: PREMEDICATION
     Route: 042
     Dates: start: 20120531
  7. ACETAMINOPHEN [Concomitant]
     Indication: PREMEDICATION
     Route: 048
     Dates: start: 20120531

REACTIONS (5)
  - Oropharyngeal pain [Recovered/Resolved]
  - Infusion related reaction [Recovered/Resolved]
  - Hypertension [Recovered/Resolved]
  - Urticaria [Recovered/Resolved]
  - Laryngeal oedema [Recovered/Resolved]
